FAERS Safety Report 4294309-2 (Version None)
Quarter: 2004Q1

REPORT INFORMATION
  Report Type: 
  Country: None (occurrence: None)
  Receive Date: 20040212
  Receipt Date: 20040212
  Transmission Date: 20041129
  Serious: Yes (Death, Hospitalization)
  Sender: FDA-Public Use
  Company Number: None

PATIENT
  Age: 57 Year
  Sex: Male
  Weight: 81.7 kg

DRUGS (5)
  1. IRINOTECAN 100 MG (5 ML VIALS 20MG/ML) PHARMACIA [Suspect]
     Indication: PANCREATIC CARCINOMA
     Dosage: 50MG/M2 IV DAYS 1, 8, 15, + 22
     Route: 042
     Dates: start: 20031211, end: 20040128
  2. DOCETXEL 80MG/2ML VIALS/AVENTIS [Suspect]
     Indication: PANCREATIC CARCINOMA
     Dosage: 35MG/M2 IV OF 36 DAY CYCLE
     Route: 042
     Dates: start: 20031211, end: 20040128
  3. DECADRON [Concomitant]
  4. ANZEMET [Concomitant]
  5. ENOXAPARIN SODIUM [Concomitant]

REACTIONS (11)
  - ABDOMINAL DISTENSION [None]
  - ABDOMINAL PAIN [None]
  - COMPUTERISED TOMOGRAM ABNORMAL [None]
  - CONFUSIONAL STATE [None]
  - DYSPNOEA [None]
  - HYPOTENSION [None]
  - LUNG CONSOLIDATION [None]
  - METASTATIC NEOPLASM [None]
  - OEDEMA PERIPHERAL [None]
  - PLEURAL EFFUSION [None]
  - TACHYCARDIA [None]
